FAERS Safety Report 4727937-8 (Version None)
Quarter: 2005Q3

REPORT INFORMATION
  Report Type: 
  Country: None (occurrence: None)
  Receive Date: 20050725
  Receipt Date: 20050321
  Transmission Date: 20060218
  Serious: No
  Sender: FDA-Public Use
  Company Number: USA050393755

PATIENT
  Age: 8 Year
  Sex: Female
  Weight: 41 kg

DRUGS (1)
  1. STRATTERA [Suspect]
     Dosage: 60 MG/1 IN THE MORNING
     Dates: start: 20041101

REACTIONS (3)
  - INFLUENZA [None]
  - PRESCRIBED OVERDOSE [None]
  - VOMITING [None]
